FAERS Safety Report 7172890-3 (Version None)
Quarter: 2010Q4

REPORT INFORMATION
  Report Type: 
  Country: None (occurrence: None)
  Receive Date: 20101219
  Receipt Date: 20100216
  Transmission Date: 20110411
  Serious: Yes (Hospitalization)
  Sender: FDA-Public Use
  Company Number: US-AMGEN-KDL393148

PATIENT

DRUGS (1)
  1. ENBREL [Suspect]
     Indication: PSORIATIC ARTHROPATHY
     Dosage: 25 MG, 2 TIMES/WK
     Route: 058
     Dates: start: 20040901

REACTIONS (5)
  - INJECTION SITE PAIN [None]
  - LUNG DISORDER [None]
  - NASOPHARYNGITIS [None]
  - PAIN [None]
  - PNEUMONIA [None]
